FAERS Safety Report 24731019 (Version 1)
Quarter: 2024Q4

REPORT INFORMATION
  Report Type: Spontaneous
  Country: US (occurrence: None)
  Receive Date: 20241212
  Receipt Date: 20241212
  Transmission Date: 20250114
  Serious: Yes (Hospitalization, Disabling, Other)
  Sender: Public
  Company Number: None

PATIENT
  Age: 65 Year
  Sex: Female
  Weight: 54 kg

DRUGS (2)
  1. AUVELITY [Suspect]
     Active Substance: BUPROPION HYDROCHLORIDE\DEXTROMETHORPHAN HYDROBROMIDE
     Indication: Major depression
     Dosage: TWICE A DAY ORAL
     Route: 048
     Dates: start: 20100101
  2. BUPROPION [Suspect]
     Active Substance: BUPROPION

REACTIONS (1)
  - Ataxia [None]

NARRATIVE: CASE EVENT DATE: 20240517
